FAERS Safety Report 17934877 (Version 1)
Quarter: 2020Q2

REPORT INFORMATION
  Report Type: Spontaneous
  Country: US (occurrence: US)
  Receive Date: 20200623
  Receipt Date: 20200623
  Transmission Date: 20200714
  Serious: Yes (Death)
  Sender: FDA-Public Use
  Company Number: None

PATIENT
  Sex: Female

DRUGS (25)
  1. BYDUREON BC [Concomitant]
  2. FUROSEMIDE. [Concomitant]
     Active Substance: FUROSEMIDE
  3. INCRUSE ELLIPTA [Concomitant]
     Active Substance: UMECLIDINIUM BROMIDE
  4. IPRATROPIUM [Concomitant]
     Active Substance: IPRATROPIUM
  5. TRESIBA FLEX [Concomitant]
  6. ESBRIET [Suspect]
     Active Substance: PIRFENIDONE
     Indication: IDIOPATHIC PULMONARY FIBROSIS
     Route: 048
     Dates: start: 20200305
  7. LANTUS SOLOS [Concomitant]
  8. TOUJEO MAX [Concomitant]
     Active Substance: INSULIN GLARGINE
  9. CARVEDILOL. [Concomitant]
     Active Substance: CARVEDILOL
  10. HUMALOG KWIK [Concomitant]
  11. LEVEMIR FLEXTOLIC [Concomitant]
  12. MOMETASONE [Concomitant]
     Active Substance: MOMETASONE
  13. ATORVASTATIN [Concomitant]
     Active Substance: ATORVASTATIN
  14. ATROVENT HFA [Concomitant]
     Active Substance: IPRATROPIUM BROMIDE
  15. BREO ELLIPTA [Concomitant]
     Active Substance: FLUTICASONE FUROATE\VILANTEROL TRIFENATATE
  16. LISINOPRIL. [Concomitant]
     Active Substance: LISINOPRIL
  17. METFORMIN [Concomitant]
     Active Substance: METFORMIN HYDROCHLORIDE
  18. NITROFURANTIN [Concomitant]
     Active Substance: NITROFURANTOIN
  19. TRULICITY [Concomitant]
     Active Substance: DULAGLUTIDE
  20. VICTOZA [Concomitant]
     Active Substance: LIRAGLUTIDE
  21. CEPHALEXIN. [Concomitant]
     Active Substance: CEPHALEXIN
  22. LEVOTHYROXIN [Concomitant]
     Active Substance: LEVOTHYROXINE
  23. LOSARTAN POT [Concomitant]
     Active Substance: LOSARTAN POTASSIUM
  24. OFLOXACIN. [Concomitant]
     Active Substance: OFLOXACIN
  25. POT CHLORIDE [Concomitant]
     Active Substance: POTASSIUM CHLORIDE

REACTIONS (1)
  - Death [None]
